FAERS Safety Report 8062231-1 (Version None)
Quarter: 2012Q1

REPORT INFORMATION
  Report Type: 
  Country: None (occurrence: None)
  Receive Date: 20120113
  Receipt Date: 20120105
  Transmission Date: 20120608
  Serious: Yes (Death)
  Sender: FDA-Public Use
  Company Number: 2011110060

PATIENT
  Age: 86 Year
  Sex: Female

DRUGS (23)
  1. KALIUM HAUSEMANN EFFERVETTES (POTASSIUM BICARBONATE, POTASSIUM CITRATE [Suspect]
     Indication: HYPOKALAEMIA
     Dosage: 1 DOSAGE FORMS (1 DOSAGE FORMS, 1 IN 1 D), ORAL
     Route: 048
     Dates: end: 20110809
  2. PARAGOL (PHENOLPHTHALEIN, PARRAFIN, LIQUID) [Concomitant]
  3. SEROQUEL [Suspect]
     Dosage: WITH INCREASING DOSE TO 35 MG DAILY (25 MG, 1 IN 1 D), ORAL, 35 MG (35 MG, 1 IN 1 D), ORAL
     Route: 048
     Dates: start: 20110831
  4. SEROQUEL [Suspect]
     Dosage: WITH INCREASING DOSE TO 35 MG DAILY (25 MG, 1 IN 1 D), ORAL, 35 MG (35 MG, 1 IN 1 D), ORAL
     Route: 048
     Dates: end: 20110906
  5. MARCUMAR [Suspect]
     Indication: ATRIAL FLUTTER
     Dosage: 1 DOSAGE FORMS (1 DOSAGE FORMS, 1 IN 1 AS REQUIRED) (1 IN 1 AS REQUIRED), ORAL
     Route: 048
     Dates: start: 20110501, end: 20110901
  6. MARCUMAR [Suspect]
     Indication: ATRIAL FIBRILLATION
     Dosage: 1 DOSAGE FORMS (1 DOSAGE FORMS, 1 IN 1 AS REQUIRED) (1 IN 1 AS REQUIRED), ORAL
     Route: 048
     Dates: start: 20110501, end: 20110901
  7. DIGOXIN [Suspect]
     Indication: CARDIAC FAILURE
     Dosage: WITH INCREASING DOSE 0.125 MG DAILY (0.125 MG, 1 IN 1 D), ORAL, 0.25 MG (0.25 MG, 1 IN 1 D), ORAL, 0
     Route: 048
     Dates: start: 20110909, end: 20110909
  8. DIGOXIN [Suspect]
     Indication: CARDIAC FAILURE
     Dosage: WITH INCREASING DOSE 0.125 MG DAILY (0.125 MG, 1 IN 1 D), ORAL, 0.25 MG (0.25 MG, 1 IN 1 D), ORAL, 0
     Route: 048
     Dates: start: 20110905
  9. DIGOXIN [Suspect]
     Indication: CARDIAC FAILURE
     Dosage: WITH INCREASING DOSE 0.125 MG DAILY (0.125 MG, 1 IN 1 D), ORAL, 0.25 MG (0.25 MG, 1 IN 1 D), ORAL, 0
     Route: 048
     Dates: start: 20110810
  10. POTASSIUM CHLORIDE [Suspect]
     Indication: HYPOKALAEMIA
     Dosage: 2 DOSAGE FORMS (1 DOSAGE FORMS, 2 IN 1 D), ORAL
     Route: 048
     Dates: start: 20110826, end: 20110909
  11. FUROSEMIDE [Concomitant]
  12. RAMIPRIL [Concomitant]
  13. TORSEMIDE [Suspect]
     Indication: CARDIAC FAILURE
     Dosage: 100-150 MG/D, ORAL
     Route: 048
     Dates: start: 20110809, end: 20110809
  14. PREDNISONE [Suspect]
     Indication: CHRONIC OBSTRUCTIVE PULMONARY DISEASE
     Dosage: 10 MG (10 MG, 1 IN 1 D), ORAL, 7.5 MG (7.5 MG, 1 IN 1 D), ORAL
     Route: 048
     Dates: start: 20110906, end: 20110909
  15. KONAKION [Suspect]
     Indication: INTERNATIONAL NORMALISED RATIO ABNORMAL
     Dosage: 5 MG (5 MG, 1 IN 1 AS REQUIRED), INTRAVENOUS (NOT OTHERWISE SPECIFIED)
     Route: 042
     Dates: start: 20110910, end: 20110910
  16. HALDOL [Concomitant]
  17. NOVALGIN (METAMIZOLE SODIUM) [Concomitant]
  18. JANUVIA [Concomitant]
  19. QUETIAPINE FUMARATE [Suspect]
     Dosage: 10 MG (5 MG, IN THE EVENING), ORAL
     Route: 048
     Dates: end: 20110831
  20. KONAKION [Suspect]
     Indication: INTERNATIONAL NORMALISED RATIO ABNORMAL
     Dosage: 0.5 MG (0.5 MG, 1 IN 1 AS REQUIRED), ORAL
     Route: 048
     Dates: start: 20110902, end: 20110909
  21. CONCOR (BISOPROLOL FUARATE) [Concomitant]
  22. ACETAMINOPHEN [Concomitant]
  23. PROCTOGLYVENOL (LIDOCAINE HYDROCHLORIDE, TRIBENOSIDE) [Concomitant]

REACTIONS (11)
  - HAEMATEMESIS [None]
  - RECTAL HAEMORRHAGE [None]
  - HYPERBILIRUBINAEMIA [None]
  - GASTRITIS [None]
  - CHOLESTASIS [None]
  - GASTROINTESTINAL HAEMORRHAGE [None]
  - CARDIOVASCULAR INSUFFICIENCY [None]
  - HAEMOGLOBIN DECREASED [None]
  - HYPOALBUMINAEMIA [None]
  - MULTI-ORGAN DISORDER [None]
  - THROMBOCYTOPENIA [None]
